FAERS Safety Report 7724144-1 (Version None)
Quarter: 2011Q3

REPORT INFORMATION
  Report Type: 
  Country: None (occurrence: None)
  Receive Date: 20110901
  Receipt Date: 20110819
  Transmission Date: 20111222
  Serious: Yes (Other)
  Sender: FDA-Public Use
  Company Number: JP-ROCHE-751492

PATIENT
  Weight: 8.9 kg

DRUGS (2)
  1. OSELTAMIVIR [Suspect]
     Route: 064
     Dates: start: 20091219, end: 20091223
  2. FLU VACCINATION [Concomitant]

REACTIONS (2)
  - MATERNAL EXPOSURE DURING PREGNANCY [None]
  - CARDIAC MURMUR [None]
